FAERS Safety Report 6732130-3 (Version None)
Quarter: 2010Q2

REPORT INFORMATION
  Report Type: 
  Country: None (occurrence: None)
  Receive Date: 20100519
  Receipt Date: 20100511
  Transmission Date: 20101027
  Serious: Yes (Other)
  Sender: FDA-Public Use
  Company Number: US-SANOFI-AVENTIS-2010SA019837

PATIENT
  Age: 58 Year
  Sex: Female
  Weight: 78.92 kg

DRUGS (3)
  1. PLAVIX [Suspect]
     Route: 048
     Dates: start: 20011031, end: 20100213
  2. METFORMIN HYDROCHLORIDE [Concomitant]
     Dosage: 1 IN THE MORNING AND 1 IN THE EVENING
     Dates: start: 20011031
  3. LISINOPRIL [Concomitant]
     Indication: BLOOD PRESSURE
     Dates: start: 20100113

REACTIONS (6)
  - ARTHRALGIA [None]
  - BACK PAIN [None]
  - DEEP VEIN THROMBOSIS [None]
  - JOINT SWELLING [None]
  - NERVE COMPRESSION [None]
  - THROMBOSIS [None]
